FAERS Safety Report 24433624 (Version 3)
Quarter: 2024Q4

REPORT INFORMATION
  Report Type: Spontaneous
  Country: PL (occurrence: PL)
  Receive Date: 20241014
  Receipt Date: 20241119
  Transmission Date: 20250115
  Serious: Yes (Other)
  Sender: BAXTER
  Company Number: None

PATIENT
  Age: 43 Year
  Sex: Female
  Weight: 60 kg

DRUGS (3)
  1. PROPOFOL [Suspect]
     Active Substance: PROPOFOL
     Dosage: (PROPOFOL 1%) 110 MG AT AN UNSPECIFIED FREQUENCY
     Route: 042
     Dates: start: 20200107, end: 20200107
  2. FENTANYL [Concomitant]
     Active Substance: FENTANYL
     Dosage: 0.1 MG
     Route: 042
     Dates: start: 20200107, end: 20200107
  3. MIDAZOLAM HYDROCHLORIDE [Concomitant]
     Active Substance: MIDAZOLAM HYDROCHLORIDE
     Dosage: (MIDANIUM 1 MG/ML INJECTION HOLE) 1 MG
     Route: 042
     Dates: start: 20200107

REACTIONS (5)
  - Abdominal pain [Recovered/Resolved]
  - Chills [Recovered/Resolved]
  - Headache [Recovered/Resolved]
  - Vomiting [Recovered/Resolved]
  - Nausea [Recovered/Resolved]

NARRATIVE: CASE EVENT DATE: 20200107
